FAERS Safety Report 12207000 (Version 1)
Quarter: 2016Q1

REPORT INFORMATION
  Report Type: Spontaneous
  Country: US (occurrence: None)
  Receive Date: 20160323
  Receipt Date: 20160323
  Transmission Date: 20160526
  Serious: Yes (Hospitalization)
  Sender: FDA-Public Use
  Company Number: None

PATIENT
  Age: 59 Year
  Sex: Female
  Weight: 69.2 kg

DRUGS (10)
  1. WARFARIN 5MG [Suspect]
     Active Substance: WARFARIN
     Indication: MITRAL VALVE INCOMPETENCE
     Route: 048
  2. ACETAMINOPHEN. [Concomitant]
     Active Substance: ACETAMINOPHEN
  3. LIPITOR [Concomitant]
     Active Substance: ATORVASTATIN CALCIUM
  4. TORSEMIDE (DEMADEX) [Concomitant]
  5. WARFARIN 5MG [Suspect]
     Active Substance: WARFARIN
     Indication: POSTOPERATIVE CARE
     Route: 048
  6. METOPROLOL (LOPRESSOR) [Concomitant]
  7. LACTULOSE. [Concomitant]
     Active Substance: LACTULOSE
  8. SEVELAMER (RENVELA) [Concomitant]
  9. CALCITRIOL (ROCALTROL) [Concomitant]
  10. PERITONEAL DIALYSIS SOLUTIONS (DIANEAL) [Concomitant]

REACTIONS (2)
  - International normalised ratio abnormal [None]
  - Epistaxis [None]

NARRATIVE: CASE EVENT DATE: 20160124
